FAERS Safety Report 25540269 (Version 1)
Quarter: 2025Q3

REPORT INFORMATION
  Report Type: Spontaneous
  Country: GB (occurrence: GB)
  Receive Date: 20250710
  Receipt Date: 20250710
  Transmission Date: 20251020
  Serious: Yes (Disabling)
  Sender: PFIZER
  Company Number: None

PATIENT
  Age: 77 Year
  Sex: Male

DRUGS (9)
  1. TAFAMIDIS [Suspect]
     Active Substance: TAFAMIDIS
  2. ATORVASTATIN [Concomitant]
     Active Substance: ATORVASTATIN
  3. APIXABAN [Concomitant]
     Active Substance: APIXABAN
  4. DAPAGLIFLOZIN [Concomitant]
     Active Substance: DAPAGLIFLOZIN
  5. MEBEVERINE [Concomitant]
     Active Substance: MEBEVERINE
  6. FUROSEMIDE [Concomitant]
     Active Substance: FUROSEMIDE
  7. QUININE [Concomitant]
     Active Substance: QUININE
  8. RAMIPRIL [Concomitant]
     Active Substance: RAMIPRIL
  9. RETINOL [Concomitant]
     Active Substance: RETINOL

REACTIONS (2)
  - Dyspnoea [Not Recovered/Not Resolved]
  - Diarrhoea [Not Recovered/Not Resolved]
